FAERS Safety Report 21156689 (Version 2)
Quarter: 2022Q4

REPORT INFORMATION
  Report Type: Spontaneous
  Country: FR (occurrence: FR)
  Receive Date: 20220801
  Receipt Date: 20221010
  Transmission Date: 20230113
  Serious: Yes (Other)
  Sender: FDA-Public Use
  Company Number: FR-Merz Pharmaceuticals GmbH-22-02231

PATIENT
  Age: 24 Year
  Sex: Female

DRUGS (3)
  1. BOCOUTURE [Suspect]
     Active Substance: BOTULINUM TOXIN TYPE A
     Indication: Skin cosmetic procedure
     Dates: start: 20220523, end: 20220523
  2. BOCOUTURE [Suspect]
     Active Substance: BOTULINUM TOXIN TYPE A
     Indication: Skin wrinkling
  3. BOCOUTURE [Suspect]
     Active Substance: BOTULINUM TOXIN TYPE A
     Indication: Skin wrinkling

REACTIONS (2)
  - Parathyroid cyst [Unknown]
  - Eyelid ptosis [Recovered/Resolved]

NARRATIVE: CASE EVENT DATE: 20220101
